FAERS Safety Report 22354699 (Version 1)
Quarter: 2023Q2

REPORT INFORMATION
  Report Type: Spontaneous
  Country: US (occurrence: None)
  Receive Date: 20230522
  Receipt Date: 20230522
  Transmission Date: 20230721
  Serious: Yes (Disabling)
  Sender: FDA-Public Use
  Company Number: None

PATIENT
  Age: 57 Year
  Sex: Male
  Weight: 104.4 kg

DRUGS (5)
  1. VRAYLAR [Suspect]
     Active Substance: CARIPRAZINE
     Indication: Bipolar I disorder
     Dosage: OTHER QUANTITY : 1 CAPSULE(S);?OTHER ROUTE : BY MOUTH;?
     Route: 050
     Dates: start: 20230419, end: 20230522
  2. ALLOPURINOL [Concomitant]
  3. LAMOTRIGINE [Concomitant]
     Active Substance: LAMOTRIGINE
  4. COLCHICINE [Concomitant]
     Active Substance: COLCHICINE
  5. ALLEGRA [Concomitant]
     Active Substance: FEXOFENADINE HYDROCHLORIDE

REACTIONS (4)
  - Sleep apnoea syndrome [None]
  - Oropharyngeal pain [None]
  - Pharyngeal inflammation [None]
  - Heart rate increased [None]

NARRATIVE: CASE EVENT DATE: 20230508
